FAERS Safety Report 17232331 (Version 2)
Quarter: 2023Q4

REPORT INFORMATION
  Report Type: Spontaneous
  Country: US (occurrence: US)
  Receive Date: 20200103
  Receipt Date: 20231215
  Transmission Date: 20240110
  Serious: No
  Sender: FDA-Public Use
  Company Number: US-JNJFOC-20200103971

PATIENT
  Age: 9 Year
  Sex: Male

DRUGS (2)
  1. RISPERDAL [Suspect]
     Active Substance: RISPERIDONE
     Indication: Aggression
     Dosage: VARYING DOSE OF 0.5 MG HALF IN MORNING AND 1HALF IN NIGHT AND 0.5 MG. 1 BID AND 0.5 MG THRICE A DAY
     Route: 048
     Dates: start: 2002, end: 20050206
  2. RISPERDAL [Suspect]
     Active Substance: RISPERIDONE
     Indication: Product used for unknown indication
     Dosage: 1MG/1CC , 0.5 CC IN MORNING AND 0.25 CC IN NIGHT
     Route: 048
     Dates: start: 2005

REACTIONS (7)
  - Gynaecomastia [Unknown]
  - Emotional disorder [Unknown]
  - Enuresis [Unknown]
  - Treatment noncompliance [Unknown]
  - Weight increased [Unknown]
  - Drug ineffective [Unknown]
  - Off label use [Unknown]

NARRATIVE: CASE EVENT DATE: 20050101
